FAERS Safety Report 22042214 (Version 1)
Quarter: 2023Q1

REPORT INFORMATION
  Report Type: Other
  Country: AU (occurrence: AU)
  Receive Date: 20230227
  Receipt Date: 20230227
  Transmission Date: 20230418
  Serious: Yes (Other)
  Sender: FDA-Public Use
  Company Number: AU-CELLTRION INC.-2023AU004077

PATIENT

DRUGS (3)
  1. RITUXIMAB [Suspect]
     Active Substance: RITUXIMAB
     Indication: Product used for unknown indication
  2. ELTROMBOPAG [Suspect]
     Active Substance: ELTROMBOPAG
     Indication: Product used for unknown indication
  3. AZATHIOPRINE [Suspect]
     Active Substance: AZATHIOPRINE
     Indication: Product used for unknown indication

REACTIONS (9)
  - Encephalopathy [Unknown]
  - Pancreatitis [Unknown]
  - Hepatic function abnormal [Unknown]
  - Hepatomegaly [Unknown]
  - Hypoglycaemia [Unknown]
  - Coagulopathy [Unknown]
  - Platelet count decreased [Unknown]
  - Hypersensitivity [Unknown]
  - Drug ineffective [Unknown]
